FAERS Safety Report 23808142 (Version 1)
Quarter: 2024Q2

REPORT INFORMATION
  Report Type: Spontaneous
  Country: CN (occurrence: CN)
  Receive Date: 20240502
  Receipt Date: 20240502
  Transmission Date: 20240716
  Serious: Yes (Death)
  Sender: FDA-Public Use
  Company Number: CN-PFIZER INC-PV202400056352

PATIENT
  Age: 51 Year
  Sex: Female

DRUGS (28)
  1. AVIBACTAM SODIUM\CEFTAZIDIME [Suspect]
     Active Substance: AVIBACTAM SODIUM\CEFTAZIDIME
     Dosage: 2.5 G, Q8H
     Route: 041
     Dates: start: 20240331, end: 20240413
  2. TIGECYCLINE [Suspect]
     Active Substance: TIGECYCLINE
     Dosage: 50 MG, 2X/DAY
     Route: 041
     Dates: start: 20240329, end: 20240411
  3. VORICONAZOLE [Suspect]
     Active Substance: VORICONAZOLE
     Dosage: 200 MG, 2X/DAY
     Route: 041
     Dates: start: 20240326, end: 20240404
  4. TEICOPLANIN [Suspect]
     Active Substance: TEICOPLANIN
     Dosage: 0.4 G, 1X/DAY
     Route: 041
     Dates: start: 20240326, end: 20240406
  5. MEROPENEM [Suspect]
     Active Substance: MEROPENEM
     Dosage: 1 G, 3X/DAY
     Route: 041
     Dates: start: 20240326, end: 20240331
  6. MEROPENEM [Suspect]
     Active Substance: MEROPENEM
     Dosage: UNK, 3X/DAY
     Route: 042
     Dates: start: 20240326, end: 20240413
  7. AMPHOTERICIN B [Suspect]
     Active Substance: AMPHOTERICIN B
     Dosage: 10 MG, 1X/DAY
     Route: 055
     Dates: start: 20240326, end: 20240329
  8. AMPHOTERICIN B [Suspect]
     Active Substance: AMPHOTERICIN B
     Dosage: 30 MG, 1X/DAY
     Route: 041
     Dates: start: 20240327, end: 20240329
  9. AMPHOTERICIN B [Suspect]
     Active Substance: AMPHOTERICIN B
     Dosage: 50 MG, 1X/DAY
     Route: 041
     Dates: start: 20240329, end: 20240330
  10. AMPHOTERICIN B [Suspect]
     Active Substance: AMPHOTERICIN B
     Dosage: 50 MG, 1X/DAY
     Route: 041
     Dates: start: 20240330, end: 20240401
  11. GENTAMICIN SULFATE [Suspect]
     Active Substance: GENTAMICIN SULFATE
     Dosage: 16 DF, 1X/DAY
     Route: 002
     Dates: start: 20240327, end: 20240413
  12. DEXTROSE [Concomitant]
     Active Substance: DEXTROSE\DEXTROSE MONOHYDRATE
     Dosage: 50 ML, 1X/DAY
     Route: 041
     Dates: start: 20240326, end: 20240406
  13. DEXTROSE [Concomitant]
     Active Substance: DEXTROSE\DEXTROSE MONOHYDRATE
     Dosage: 100 ML, Q12H
     Route: 041
     Dates: start: 20240326, end: 20240404
  14. DEXTROSE [Concomitant]
     Active Substance: DEXTROSE\DEXTROSE MONOHYDRATE
     Dosage: 250 ML, 1X/DAY
     Route: 041
     Dates: start: 20240327, end: 20240329
  15. DEXTROSE [Concomitant]
     Active Substance: DEXTROSE\DEXTROSE MONOHYDRATE
     Dosage: 100 ML, Q12H
     Route: 041
     Dates: start: 20240327, end: 20240411
  16. DEXTROSE [Concomitant]
     Active Substance: DEXTROSE\DEXTROSE MONOHYDRATE
     Dosage: 250 ML, 1X/DAY
     Route: 041
     Dates: start: 20240329, end: 20240330
  17. DEXTROSE [Concomitant]
     Active Substance: DEXTROSE\DEXTROSE MONOHYDRATE
     Dosage: 250 ML, 1X/DAY
     Route: 041
     Dates: start: 20240330, end: 20240401
  18. SODIUM CHLORIDE [Concomitant]
     Active Substance: SODIUM CHLORIDE
     Dosage: 100 ML, Q8H
     Route: 041
     Dates: start: 20240326, end: 20240331
  19. STERILE WATER FOR INJECTION [Concomitant]
     Active Substance: WATER
     Dosage: 10 ML, 1X/DAY
     Route: 055
     Dates: start: 20240326, end: 20240329
  20. SODIUM CHLORIDE [Concomitant]
     Active Substance: SODIUM CHLORIDE
     Dosage: 5 ML, 1X/DAY
     Route: 055
     Dates: start: 20240326, end: 20240329
  21. ACETYLCYSTEINE [Concomitant]
     Active Substance: ACETYLCYSTEINE
     Dosage: 3 ML, 1X/DAY
     Route: 055
     Dates: start: 20240326, end: 20240329
  22. IPRATROPIUM BROMIDE [Concomitant]
     Active Substance: IPRATROPIUM BROMIDE\IPRATROPIUM BROMIDE ANHYDROUS
     Dosage: 1 ML, 1X/DAY
     Route: 055
     Dates: start: 20240326, end: 20240329
  23. BUDESONIDE [Concomitant]
     Active Substance: BUDESONIDE
     Dosage: 1 MG, 1X/DAY
     Route: 055
     Dates: start: 20240326, end: 20240329
  24. DEXAMETHASONE SODIUM PHOSPHATE [Concomitant]
     Active Substance: DEXAMETHASONE PHOSPHATE\DEXAMETHASONE SODIUM PHOSPHATE
     Dosage: 1 MG, 1X/DAY
     Route: 040
     Dates: start: 20240327, end: 20240403
  25. SODIUM CHLORIDE PHYSIOLOGICAL [Concomitant]
     Dosage: 500 ML, 1X/DAY
     Route: 002
     Dates: start: 20240327, end: 20240413
  26. LIDOCAINE HYDROCHLORIDE [Concomitant]
     Active Substance: LIDOCAINE HYDROCHLORIDE
     Dosage: 5 ML, 1X/DAY
     Route: 002
     Dates: start: 20240327, end: 20240413
  27. MONTELUKAST SODIUM [Concomitant]
     Active Substance: MONTELUKAST SODIUM
     Dosage: 10 MG, 1X/DAY
     Route: 048
     Dates: start: 20240327, end: 20240406
  28. GILTERITINIB [Concomitant]
     Active Substance: GILTERITINIB
     Dosage: 40 MG, 1X/DAY
     Route: 048
     Dates: start: 20240330, end: 20240401

REACTIONS (1)
  - Drug ineffective [Fatal]
